FAERS Safety Report 12471464 (Version 1)
Quarter: 2016Q2

REPORT INFORMATION
  Report Type: Spontaneous
  Country: US (occurrence: US)
  Receive Date: 20160616
  Receipt Date: 20160616
  Transmission Date: 20160815
  Serious: No
  Sender: FDA-Public Use
  Company Number: US-GLAXOSMITHKLINE-US2016GSK080773

PATIENT
  Sex: Female

DRUGS (3)
  1. SUMATRIPTAN SUCCINATE SOLUTION FOR INJECTION IN PRE-FILLED PEN [Suspect]
     Active Substance: SUMATRIPTAN SUCCINATE
     Dosage: 6 MG, UNK
  2. SUMATRIPTAN SUCCINATE SOLUTION FOR INJECTION IN PRE-FILLED PEN [Suspect]
     Active Substance: SUMATRIPTAN SUCCINATE
     Dosage: 6 MG, UNK
  3. SUMATRIPTAN SUCCINATE SOLUTION FOR INJECTION IN PRE-FILLED PEN [Suspect]
     Active Substance: SUMATRIPTAN SUCCINATE
     Indication: PRODUCT USED FOR UNKNOWN INDICATION
     Dosage: 6 MG, UNK

REACTIONS (4)
  - Device issue [Unknown]
  - Injection site pain [Unknown]
  - Drug dose omission [Unknown]
  - Product quality issue [Unknown]
